FAERS Safety Report 10461665 (Version 2)
Quarter: 2014Q3

REPORT INFORMATION
  Report Type: Spontaneous
  Country: PL (occurrence: PL)
  Receive Date: 20140918
  Receipt Date: 20140918
  Transmission Date: 20150326
  Serious: Yes (Hospitalization)
  Sender: FDA-Public Use
  Company Number: PL-RANBAXY-2013RR-77237

PATIENT
  Age: 63 Year
  Sex: Female

DRUGS (4)
  1. HYDROCORTISONE. [Suspect]
     Active Substance: HYDROCORTISONE
     Indication: PSORIASIS
     Route: 061
  2. ALTACET [Suspect]
     Active Substance: ALUMINUM ACETATE
     Indication: OEDEMA PERIPHERAL
     Dosage: UNK
     Route: 061
  3. CEFUROXIME. [Suspect]
     Active Substance: CEFUROXIME
     Indication: GENERAL PHYSICAL HEALTH DETERIORATION
     Dosage: 500 MG, BID
     Route: 048
  4. CLOBETASOL PROPIONATE. [Suspect]
     Active Substance: CLOBETASOL PROPIONATE
     Indication: PSORIASIS
     Route: 061

REACTIONS (3)
  - Oedema peripheral [Recovering/Resolving]
  - Psoriasis [Recovering/Resolving]
  - Pemphigoid [Recovering/Resolving]
